FAERS Safety Report 15334005 (Version 1)
Quarter: 2018Q3

REPORT INFORMATION
  Report Type: Report from Study
  Country: FR (occurrence: FR)
  Receive Date: 20180830
  Receipt Date: 20180830
  Transmission Date: 20181010
  Serious: Yes (Hospitalization, Other)
  Sender: FDA-Public Use
  Company Number: FR-IPSEN BIOPHARMACEUTICALS, INC.-2018-12512

PATIENT
  Age: 60 Year
  Sex: Male
  Weight: 63 kg

DRUGS (21)
  1. PEGYLATED LIPOSOMAL IRINOTECAN [Suspect]
     Active Substance: IRINOTECAN HYDROCHLORIDE
     Indication: COLORECTAL CANCER METASTATIC
     Route: 042
     Dates: start: 20170116
  2. PEGYLATED LIPOSOMAL IRINOTECAN [Suspect]
     Active Substance: IRINOTECAN HYDROCHLORIDE
     Dosage: NINTH CYCLE
     Route: 042
     Dates: start: 20170523
  3. 5?FLUOROURACIL [Suspect]
     Active Substance: FLUOROURACIL
     Dosage: 13TH CYCLE
     Route: 040
     Dates: start: 20170718
  4. OXALIPLATINE [Suspect]
     Active Substance: OXALIPLATIN
     Indication: COLORECTAL CANCER METASTATIC
     Route: 042
     Dates: start: 20170116
  5. PEGYLATED LIPOSOMAL IRINOTECAN [Suspect]
     Active Substance: IRINOTECAN HYDROCHLORIDE
     Dosage: 13TH CYCLE
     Route: 042
     Dates: start: 20170718
  6. AVASTIN [Suspect]
     Active Substance: BEVACIZUMAB
     Indication: COLORECTAL CANCER METASTATIC
     Route: 042
     Dates: start: 20170116
  7. AVASTIN [Suspect]
     Active Substance: BEVACIZUMAB
     Route: 042
     Dates: start: 20170523
  8. ELVORINE [Suspect]
     Active Substance: LEUCOVORIN CALCIUM
     Dosage: 13TH CYCLE
     Route: 042
     Dates: start: 20170718
  9. 5?FLUOROURACIL [Suspect]
     Active Substance: FLUOROURACIL
     Dosage: NINTH CYCLE
     Route: 041
     Dates: start: 20170523
  10. 5?FLUOROURACIL [Suspect]
     Active Substance: FLUOROURACIL
     Dosage: 13TH CYCLE
     Route: 041
     Dates: start: 20170718
  11. 5?FLUOROURACIL [Suspect]
     Active Substance: FLUOROURACIL
     Dosage: FOURTH CYCLE
     Route: 041
     Dates: start: 20170404
  12. AVASTIN [Suspect]
     Active Substance: BEVACIZUMAB
     Route: 042
     Dates: start: 20170404
  13. AVASTIN [Suspect]
     Active Substance: BEVACIZUMAB
     Route: 042
     Dates: start: 20170718
  14. OXALIPLATINE [Suspect]
     Active Substance: OXALIPLATIN
     Route: 042
     Dates: start: 20170404, end: 20170502
  15. PEGYLATED LIPOSOMAL IRINOTECAN [Suspect]
     Active Substance: IRINOTECAN HYDROCHLORIDE
     Indication: OFF LABEL USE
     Dosage: FOURTH CYCLE
     Route: 042
     Dates: start: 20170404
  16. ELVORINE [Suspect]
     Active Substance: LEUCOVORIN CALCIUM
     Indication: COLORECTAL CANCER METASTATIC
     Dosage: FIRST CYCLE
     Route: 042
     Dates: start: 20170116
  17. ELVORINE [Suspect]
     Active Substance: LEUCOVORIN CALCIUM
     Dosage: NINTH CYCLE
     Route: 042
     Dates: start: 20170523
  18. 5?FLUOROURACIL [Suspect]
     Active Substance: FLUOROURACIL
     Dosage: FOURTH CYCLE
     Route: 040
     Dates: start: 20170404
  19. 5?FLUOROURACIL [Suspect]
     Active Substance: FLUOROURACIL
     Indication: COLORECTAL CANCER METASTATIC
     Dosage: FIRST CYCLE
     Route: 041
     Dates: start: 20170116
  20. 5?FLUOROURACIL [Suspect]
     Active Substance: FLUOROURACIL
     Dosage: FIRST CYCLE
     Route: 040
     Dates: start: 20170116
  21. 5?FLUOROURACIL [Suspect]
     Active Substance: FLUOROURACIL
     Dosage: NINTH CYCLE
     Route: 040
     Dates: start: 20170523

REACTIONS (6)
  - Epistaxis [Recovered/Resolved]
  - Asthenia [Recovered/Resolved]
  - Intestinal obstruction [Recovered/Resolved]
  - Decreased appetite [Recovered/Resolved]
  - Off label use [Unknown]
  - Neutropenia [Recovered/Resolved]

NARRATIVE: CASE EVENT DATE: 20170117
